FAERS Safety Report 14995298 (Version 7)
Quarter: 2019Q3

REPORT INFORMATION
  Report Type: Spontaneous
  Country: US (occurrence: US)
  Receive Date: 20180611
  Receipt Date: 20190731
  Transmission Date: 20191004
  Serious: Yes (Other)
  Sender: FDA-Public Use
  Company Number: US-SA-2018SA046959

PATIENT
  Age: 54 Year
  Sex: Female
  Weight: 62 kg

DRUGS (5)
  1. TAXOTERE [Suspect]
     Active Substance: DOCETAXEL
     Dosage: 125 MG, Q3W
     Route: 042
     Dates: start: 20120312, end: 20120312
  2. HERCEPTIN [Concomitant]
     Active Substance: TRASTUZUMAB
  3. PARAPLATIN [Concomitant]
     Active Substance: CARBOPLATIN
     Dosage: UNK
  4. TAXOTERE [Suspect]
     Active Substance: DOCETAXEL
     Indication: BREAST CANCER FEMALE
     Dosage: 125 MG, Q3W
     Route: 042
     Dates: start: 20111130, end: 20111130
  5. AMLODIPINE [Concomitant]
     Active Substance: AMLODIPINE BESYLATE

REACTIONS (6)
  - Anxiety [Unknown]
  - Emotional distress [Unknown]
  - Alopecia [Recovering/Resolving]
  - Impaired quality of life [Unknown]
  - Psychological trauma [Unknown]
  - Pain [Unknown]

NARRATIVE: CASE EVENT DATE: 20111230
